FAERS Safety Report 5813018-9 (Version None)
Quarter: 2008Q3

REPORT INFORMATION
  Report Type: 
  Country: None (occurrence: None)
  Receive Date: 20080717
  Receipt Date: 20071130
  Transmission Date: 20090109
  Serious: No
  Sender: FDA-Public Use
  Company Number: A0689488A

PATIENT
  Sex: Female

DRUGS (1)
  1. NICORETTE [Suspect]
     Dates: start: 20071022

REACTIONS (2)
  - NICOTINE DEPENDENCE [None]
  - PHARMACEUTICAL PRODUCT COMPLAINT [None]
